FAERS Safety Report 6168866-5 (Version None)
Quarter: 2009Q2

REPORT INFORMATION
  Report Type: 
  Country: None (occurrence: None)
  Receive Date: 20090427
  Receipt Date: 20090416
  Transmission Date: 20091009
  Serious: Yes (Hospitalization)
  Sender: FDA-Public Use
  Company Number: FR-WYE-H09028409

PATIENT
  Age: 87 Year
  Sex: Female

DRUGS (11)
  1. PANTOPRAZOLE SODIUM [Suspect]
     Route: 048
     Dates: end: 20090313
  2. SPIRIVA [Suspect]
     Dosage: ONE DOSAGE FORM, FREQUENCY UNKNOWN
     Route: 055
     Dates: end: 20090313
  3. FOSAMAX [Suspect]
     Route: 048
     Dates: end: 20090313
  4. TOCOLPHA CAP [Suspect]
     Dosage: 1 DOSAGE FORM, FREQUENCY UNKNOWN
     Route: 048
     Dates: end: 20090313
  5. KARDEGIC [Concomitant]
  6. ADANCOR [Suspect]
     Dosage: 40 MG, FREQUENCY UNKNOWN
     Route: 048
  7. CITALOPRAM HYDROBROMIDE [Suspect]
     Dosage: 20 MG, FREQUENCY UNKNOWN
     Route: 048
  8. ROPINIROLE HYDROCHLORIDE [Suspect]
     Dosage: 1.25 MG, FREQUENCY UNKNOWN
     Route: 030
     Dates: end: 20090313
  9. FORLAX [Concomitant]
     Dosage: 4000, FREQUENCY UNKNOWN
  10. SERETIDE [Suspect]
     Dosage: UNKNOWN
     Route: 055
     Dates: end: 20090313
  11. NEURONTIN [Suspect]
     Dosage: 1100 MG, FREQUENCY UNKNOWN
     Route: 048

REACTIONS (3)
  - FALL [None]
  - JOINT INJURY [None]
  - VERTIGO [None]
